FAERS Safety Report 15291242 (Version 1)
Quarter: 2018Q3

REPORT INFORMATION
  Report Type: Spontaneous
  Country: DE (occurrence: DE)
  Receive Date: 20180817
  Receipt Date: 20180817
  Transmission Date: 20181010
  Serious: Yes (Other)
  Sender: FDA-Public Use
  Company Number: DE-NOVAST LABORATORIES, LTD-DE-2018NOV000292

PATIENT
  Age: 77 Year
  Sex: Female

DRUGS (3)
  1. METHYLPREDNISOLONE. [Suspect]
     Active Substance: METHYLPREDNISOLONE
     Indication: STEVENS-JOHNSON SYNDROME
     Dosage: 60 MG, UNK (DECREASED DOSES)
  2. CLOBETASOL PROPIONATE. [Suspect]
     Active Substance: CLOBETASOL PROPIONATE
     Indication: STEVENS-JOHNSON SYNDROME
     Dosage: 60 MG, UNK (DECREASED DOSES)
     Route: 061
  3. PREDNICARBATE. [Concomitant]
     Active Substance: PREDNICARBATE
     Indication: RASH
     Route: 061

REACTIONS (1)
  - Escherichia infection [Unknown]
